FAERS Safety Report 5196783-6 (Version None)
Quarter: 2007Q1

REPORT INFORMATION
  Report Type: 
  Country: None (occurrence: None)
  Receive Date: 20070103
  Receipt Date: 20061211
  Transmission Date: 20070707
  Serious: No
  Sender: FDA-Public Use
  Company Number: FR-RB-004638-07

PATIENT
  Age: 48 Year
  Sex: Female

DRUGS (2)
  1. SUBUTEX [Suspect]
     Route: 065
  2. MEPROBAMATE [Concomitant]
     Route: 065

REACTIONS (2)
  - CONTUSION [None]
  - HAEMORRHAGE [None]
